FAERS Safety Report 9971253 (Version 1)
Quarter: 2014Q1

REPORT INFORMATION
  Report Type: Spontaneous
  Country: US (occurrence: US)
  Receive Date: 20140306
  Receipt Date: 20140306
  Transmission Date: 20141002
  Serious: No
  Sender: FDA-Public Use
  Company Number: US-TEVA-467233USA

PATIENT
  Age: 17 Year
  Sex: Female
  Weight: 99.88 kg

DRUGS (1)
  1. PLAN B [Suspect]
     Indication: POST COITAL CONTRACEPTION
     Dosage: 1.5 MILLIGRAM DAILY;
     Route: 048
     Dates: start: 200408, end: 200408

REACTIONS (2)
  - Nausea [Recovered/Resolved]
  - Menstruation irregular [Recovered/Resolved]
